FAERS Safety Report 5570459-5 (Version None)
Quarter: 2007Q4

REPORT INFORMATION
  Report Type: 
  Country: None (occurrence: None)
  Receive Date: 20071221
  Receipt Date: 20070919
  Transmission Date: 20080405
  Serious: No
  Sender: FDA-Public Use
  Company Number: US-BRISTOL-MYERS SQUIBB COMPANY-13913132

PATIENT
  Age: 68 Year
  Sex: Female
  Weight: 60 kg

DRUGS (9)
  1. ORENCIA [Suspect]
     Indication: RHEUMATOID ARTHRITIS
     Dosage: 2 DOSAGEFORM = 2 VIALS.
     Dates: start: 20070830
  2. PREDNISONE [Concomitant]
  3. ALLEGRA [Concomitant]
  4. BENADRYL [Concomitant]
  5. FOLIC ACID [Concomitant]
  6. METHOTREXATE [Concomitant]
  7. CENTRUM [Concomitant]
  8. VITAMIN A [Concomitant]
  9. CITRACAL [Concomitant]

REACTIONS (2)
  - MEDICATION ERROR [None]
  - NO ADVERSE REACTION [None]
